FAERS Safety Report 20321766 (Version 1)
Quarter: 2022Q1

REPORT INFORMATION
  Report Type: Spontaneous
  Country: US (occurrence: None)
  Receive Date: 20220110
  Receipt Date: 20220110
  Transmission Date: 20220424
  Serious: Yes (Other)
  Sender: FDA-Public Use
  Company Number: None

PATIENT
  Age: 30 Year
  Sex: Female
  Weight: 138 kg

DRUGS (3)
  1. EMEND (FOSAPREPITANT DIMEGLUMINE) [Suspect]
     Active Substance: FOSAPREPITANT DIMEGLUMINE
     Indication: Prophylaxis of nausea and vomiting
     Dates: start: 20211228
  2. ondansetron 16 mg [Concomitant]
     Dates: start: 20211228
  3. dexamethasone 12 mg [Concomitant]
     Dates: start: 20211228

REACTIONS (6)
  - Chest discomfort [None]
  - Dyspnoea [None]
  - Pain [None]
  - Skin tightness [None]
  - Infusion related reaction [None]
  - Abdominal discomfort [None]

NARRATIVE: CASE EVENT DATE: 20211228
